FAERS Safety Report 13351424 (Version 2)
Quarter: 2017Q1

REPORT INFORMATION
  Report Type: Spontaneous
  Country: JP (occurrence: JP)
  Receive Date: 20170320
  Receipt Date: 20170328
  Transmission Date: 20170429
  Serious: Yes (Other)
  Sender: FDA-Public Use
  Company Number: JP-PFIZER INC-2017047218

PATIENT
  Sex: Male

DRUGS (12)
  1. CORTRIL [Suspect]
     Active Substance: HYDROCORTISONE
     Dosage: 15 MG IN THE MORNING, 5 MG IN THE EVENING
     Route: 048
     Dates: start: 20170202
  2. OLMETEC [Concomitant]
     Active Substance: OLMESARTAN MEDOXOMIL
     Dosage: 20 MG, 1X/DAY
  3. SENNOSIDE /00571901/ [Concomitant]
     Active Substance: SENNOSIDES A AND B
     Dosage: 12 MG, 1X/DAY
  4. SELARA [Concomitant]
     Active Substance: EPLERENONE
     Indication: CARDIAC FAILURE
     Dosage: 50 MG, 1X/DAY
     Dates: start: 20170202
  5. NIZATIDINE. [Concomitant]
     Active Substance: NIZATIDINE
     Dosage: 150 MG, 2X/DAY
  6. CORTRIL [Suspect]
     Active Substance: HYDROCORTISONE
     Dosage: 10 MG, 2X/DAY
     Route: 048
     Dates: end: 20170201
  7. TRAZENTA [Concomitant]
     Active Substance: LINAGLIPTIN
     Dosage: 5 MG, 1X/DAY
  8. SAMSCA [Concomitant]
     Active Substance: TOLVAPTAN
     Indication: CARDIAC FAILURE
     Dosage: 7.5 MG, 1X/DAY
     Dates: start: 20170202
  9. EXELON [Concomitant]
     Active Substance: RIVASTIGMINE TARTRATE
     Dosage: 4.5 MG, 1X/DAY
  10. THYRADIN S [Concomitant]
     Active Substance: LEVOTHYROXINE SODIUM
     Dosage: 75 MG, 1X/DAY
  11. CORTRIL [Suspect]
     Active Substance: HYDROCORTISONE
     Dosage: 15 MG IN THE MORNING, 5 MG IN THE EVENING
     Route: 048
  12. FUROSEMIDE. [Concomitant]
     Active Substance: FUROSEMIDE
     Indication: CARDIAC FAILURE
     Dosage: 40 MG, 1X/DAY
     Dates: start: 20170202

REACTIONS (1)
  - Blood glucose increased [Unknown]
